FAERS Safety Report 22710513 (Version 4)
Quarter: 2023Q4

REPORT INFORMATION
  Report Type: Spontaneous
  Country: US (occurrence: US)
  Receive Date: 20230717
  Receipt Date: 20231208
  Transmission Date: 20240110
  Serious: Yes (Other)
  Sender: FDA-Public Use
  Company Number: US-PFIZER INC-202200541139

PATIENT
  Sex: Female
  Weight: 101 kg

DRUGS (8)
  1. IBRANCE [Suspect]
     Active Substance: PALBOCICLIB
     Indication: Breast cancer metastatic
     Dosage: 125 MG, DAILY ON DAYS 1-21 EVERY 28 DAYS
     Route: 048
  2. IBRANCE [Suspect]
     Active Substance: PALBOCICLIB
     Dosage: 125 MG DAILY 2 WEEKS ON/2 WEEKS OFF
     Route: 048
  3. IBRANCE [Suspect]
     Active Substance: PALBOCICLIB
     Dosage: 125 MG DAILY ON DAYS 1-21, EVERY 28 DAYS
     Route: 048
  4. FEMARA [Suspect]
     Active Substance: LETROZOLE
     Dosage: UNK
  5. ZITHROMAX [Concomitant]
     Active Substance: AZITHROMYCIN DIHYDRATE
     Dosage: 500 MG (TAKE 2 TABLETS BY MOUTH TODAY)
     Route: 048
  6. ZITHROMAX [Concomitant]
     Active Substance: AZITHROMYCIN DIHYDRATE
     Dosage: 250 MG, DAILY (THEN TAKE 1 TABLET DAILY FOR 4 DAYS)
     Route: 048
  7. CALCIUM [Concomitant]
     Active Substance: CALCIUM
     Dosage: UNK, 2X/DAY
  8. VIT D [VITAMIN D NOS] [Concomitant]
     Dosage: UNK, DAILY
     Route: 048

REACTIONS (10)
  - Tooth extraction [Unknown]
  - Neutropenia [Unknown]
  - Antineutrophil cytoplasmic antibody decreased [Unknown]
  - Cough [Unknown]
  - Arthralgia [Unknown]
  - Pain in extremity [Unknown]
  - Weight increased [Unknown]
  - Skin discolouration [Recovering/Resolving]
  - Skin hyperpigmentation [Unknown]
  - Dry skin [Unknown]
